FAERS Safety Report 16804051 (Version 1)
Quarter: 2019Q3

REPORT INFORMATION
  Report Type: Spontaneous
  Country: AU (occurrence: AU)
  Receive Date: 20190913
  Receipt Date: 20190913
  Transmission Date: 20191005
  Serious: Yes (Hospitalization, Other)
  Sender: FDA-Public Use
  Company Number: AU-ACCORD-154878

PATIENT
  Age: 79 Year
  Sex: Female

DRUGS (6)
  1. ESCITALOPRAM [Suspect]
     Active Substance: ESCITALOPRAM OXALATE
     Indication: ANXIETY
  2. AMLODIPINE [Concomitant]
     Active Substance: AMLODIPINE BESYLATE
  3. AMIODARONE [Concomitant]
     Active Substance: AMIODARONE
  4. RIVAROXABAN [Concomitant]
     Active Substance: RIVAROXABAN
  5. OLMESARTAN/OLMESARTAN MEDOXOMIL [Concomitant]
  6. DIAZEPAM. [Concomitant]
     Active Substance: DIAZEPAM
     Indication: ANXIETY

REACTIONS (3)
  - Fall [Unknown]
  - Stress cardiomyopathy [Recovered/Resolved]
  - Hyponatraemia [Recovered/Resolved]
